FAERS Safety Report 25943116 (Version 1)
Quarter: 2025Q4

REPORT INFORMATION
  Report Type: Spontaneous
  Country: US (occurrence: None)
  Receive Date: 20251020
  Receipt Date: 20251020
  Transmission Date: 20260117
  Serious: Yes (Other)
  Sender: FDA-CTU
  Company Number: None

PATIENT
  Age: 62 Year
  Sex: Female
  Weight: 90 kg

DRUGS (1)
  1. HYQVIA [Suspect]
     Active Substance: HUMAN IMMUNOGLOBULIN G\HYALURONIDASE (HUMAN RECOMBINANT)
     Indication: Autoimmune disorder
     Dosage: OTHER FREQUENCY : Q4 WEEKS;?
     Route: 058

REACTIONS (2)
  - Infusion site urticaria [None]
  - Infusion site pain [None]

NARRATIVE: CASE EVENT DATE: 20251016
